FAERS Safety Report 10251840 (Version 1)
Quarter: 2014Q2

REPORT INFORMATION
  Report Type: Spontaneous
  Country: US (occurrence: US)
  Receive Date: 20140623
  Receipt Date: 20140623
  Transmission Date: 20141212
  Serious: No
  Sender: FDA-Public Use
  Company Number: US-009507513-1406USA001847

PATIENT
  Age: 21 Year
  Sex: Female

DRUGS (1)
  1. NEXPLANON [Suspect]
     Indication: CONTRACEPTION
     Dosage: DOSE/FREQUENCY: 68 MG/ONE ROD INSERTED EVERY THREE YEARS
     Route: 059
     Dates: start: 20140424

REACTIONS (3)
  - Application site inflammation [Unknown]
  - Injection site erythema [Unknown]
  - Device expulsion [Unknown]
